FAERS Safety Report 7763195-8 (Version None)
Quarter: 2011Q3

REPORT INFORMATION
  Report Type: 
  Country: None (occurrence: None)
  Receive Date: 20110920
  Receipt Date: 20110914
  Transmission Date: 20111222
  Serious: Yes (Death, Hospitalization, Other)
  Sender: FDA-Public Use
  Company Number: PHHY2010US71096

PATIENT
  Sex: Male
  Weight: 63.9 kg

DRUGS (13)
  1. PLAVIX [Concomitant]
     Dosage: 75 MG, QD
     Route: 048
  2. LASIX [Concomitant]
     Dosage: 40 MG, QD
  3. LUPRON [Concomitant]
     Indication: PROSTATE CANCER
     Dosage: 30 MG, UNK
     Dates: end: 20091202
  4. BETA BLOCKING AGENTS [Concomitant]
     Dosage: UNK UKN, UNK
  5. ZOMETA [Suspect]
     Indication: PROSTATE CANCER METASTATIC
     Dosage: 3 MG, 100 CC NSS
     Route: 042
     Dates: start: 20090914
  6. CASODEX [Concomitant]
     Dosage: 50 MG, QD
  7. AMIODARONE HCL [Concomitant]
     Dosage: 200 MG, BID
  8. ALDACTONE [Concomitant]
     Dosage: 25 MG, QD
  9. CALCIUM CHANNEL BLOCKERS [Concomitant]
     Dosage: UNK UKN, UNK
  10. CARVEDILOL [Concomitant]
     Dosage: 6.25 MG
     Route: 048
  11. ASPIRIN [Concomitant]
     Dosage: 81 MG, QD
  12. SYNTHROID [Concomitant]
     Dosage: 50 UG, QD
  13. DIGOXIN [Concomitant]
     Dosage: 0.125 MG, QD

REACTIONS (5)
  - RECTAL HAEMORRHAGE [None]
  - CARDIAC FAILURE CONGESTIVE [None]
  - ANAEMIA [None]
  - GASTROINTESTINAL ANGIODYSPLASIA HAEMORRHAGIC [None]
  - GASTROINTESTINAL HAEMORRHAGE [None]
